FAERS Safety Report 11149606 (Version 1)
Quarter: 2015Q2

REPORT INFORMATION
  Report Type: Other
  Country: GB (occurrence: GB)
  Receive Date: 20150529
  Receipt Date: 20150529
  Transmission Date: 20150821
  Serious: Yes (Other)
  Sender: FDA-Public Use
  Company Number: GB-MYLANLABS-2015M1016546

PATIENT

DRUGS (1)
  1. VANCOMYCIN [Suspect]
     Active Substance: VANCOMYCIN
     Indication: INFECTIOUS PLEURAL EFFUSION
     Dosage: 1.5 G, TID
     Route: 042
     Dates: start: 20150507, end: 20150507

REACTIONS (4)
  - Hypersensitivity [Recovered/Resolved]
  - Red man syndrome [Recovered/Resolved]
  - Rash [Recovered/Resolved]
  - Incorrect drug administration rate [Unknown]

NARRATIVE: CASE EVENT DATE: 20150507
